FAERS Safety Report 17455146 (Version 1)
Quarter: 2020Q1

REPORT INFORMATION
  Report Type: Spontaneous
  Country: US (occurrence: US)
  Receive Date: 20200212
  Receipt Date: 20200212
  Transmission Date: 20200409
  Serious: Yes (Hospitalization)
  Sender: FDA-Public Use
  Company Number: None

PATIENT
  Sex: Female

DRUGS (7)
  1. ESTRADIOL. [Concomitant]
     Active Substance: ESTRADIOL
  2. TRAZODONE [Concomitant]
     Active Substance: TRAZODONE HYDROCHLORIDE
  3. LEVOTHYROXIN [Concomitant]
     Active Substance: LEVOTHYROXINE
  4. HUMIRA [Suspect]
     Active Substance: ADALIMUMAB
     Indication: CROHN^S DISEASE
     Dosage: ?          OTHER FREQUENCY:QWK;?
     Route: 058
     Dates: start: 20180807
  5. ATORVASTATIN [Concomitant]
     Active Substance: ATORVASTATIN
  6. AZATHIOPRINE. [Concomitant]
     Active Substance: AZATHIOPRINE
  7. DESVENLAFAX [Concomitant]

REACTIONS (1)
  - Surgery [None]
